FAERS Safety Report 25105270 (Version 1)
Quarter: 2025Q1

REPORT INFORMATION
  Report Type: Report from Study
  Country: US (occurrence: US)
  Receive Date: 20250321
  Receipt Date: 20250321
  Transmission Date: 20250409
  Serious: No
  Sender: BLUEBIRD BIO
  Company Number: US-BLUEBIRD BIO-US-BBB-25-00005

PATIENT

DRUGS (2)
  1. LYFGENIA [Suspect]
     Active Substance: LOVOTIBEGLOGENE AUTOTEMCEL
     Indication: Sickle cell disease
     Route: 065
  2. BUSULFAN [Suspect]
     Active Substance: BUSULFAN
     Indication: Bone marrow conditioning regimen
     Route: 065

REACTIONS (1)
  - Skin discolouration [Unknown]
